FAERS Safety Report 18648795 (Version 1)
Quarter: 2020Q4

REPORT INFORMATION
  Report Type: Other
  Country: US (occurrence: US)
  Receive Date: 20201222
  Receipt Date: 20201222
  Transmission Date: 20210114
  Serious: Yes (Other)
  Sender: FDA-Public Use
  Company Number: US-DEXPHARM-20201148

PATIENT
  Sex: Male

DRUGS (3)
  1. APIXABAN [Concomitant]
     Active Substance: APIXABAN
     Indication: PULMONARY EMBOLISM
  2. OMEPRAZOLE. [Suspect]
     Active Substance: OMEPRAZOLE
  3. NIVOLUMAB [Interacting]
     Active Substance: NIVOLUMAB
     Indication: METASTATIC RENAL CELL CARCINOMA
     Dosage: 75,652 MCG/G
     Route: 042

REACTIONS (3)
  - Renal tubular acidosis [Recovering/Resolving]
  - Tubulointerstitial nephritis [Recovering/Resolving]
  - Drug interaction [Recovered/Resolved]
